FAERS Safety Report 14000292 (Version 1)
Quarter: 2017Q3

REPORT INFORMATION
  Report Type: Report from Study
  Country: US (occurrence: US)
  Receive Date: 20170922
  Receipt Date: 20170922
  Transmission Date: 20171128
  Serious: Yes (Other)
  Sender: FDA-Public Use
  Company Number: US-AMGEN-USASL2017137599

PATIENT
  Age: 57 Year
  Sex: Female
  Weight: 68.27 kg

DRUGS (15)
  1. PROLIA [Suspect]
     Active Substance: DENOSUMAB
     Indication: OSTEOPOROSIS
     Dosage: 60 MG, Q6MO
     Route: 058
  2. TIROSINT [Concomitant]
     Active Substance: LEVOTHYROXINE SODIUM
     Dosage: 100 MUG, QD
     Route: 048
     Dates: start: 20150402
  3. PHOSPHATIDYLSERINE [Concomitant]
     Dosage: 100 MG, QHS
     Route: 048
     Dates: start: 20131202
  4. TRINTELLIX [Concomitant]
     Active Substance: VORTIOXETINE HYDROBROMIDE
     Dosage: 10 MG, QD
     Route: 048
     Dates: start: 20170505
  5. WELLBUTRIN [Concomitant]
     Active Substance: BUPROPION HYDROCHLORIDE
     Dosage: 300 MG, QD
     Route: 048
     Dates: start: 20151014
  6. TRETINOIN. [Concomitant]
     Active Substance: TRETINOIN
     Dosage: UNK UNK, QHS
     Dates: start: 20170505
  7. BI EST [Concomitant]
     Active Substance: ESTRADIOL\ESTRIOL
     Dosage: 4 MG, BID
     Route: 048
     Dates: start: 20131202
  8. ZOLPIDEM TARTRATE. [Concomitant]
     Active Substance: ZOLPIDEM TARTRATE
     Dosage: 10 MG, QHS
     Route: 048
     Dates: start: 20150821
  9. L-METHYLFOLATE [Concomitant]
     Active Substance: LEVOMEFOLIC ACID
     Dosage: 15 MG, BID
     Route: 048
     Dates: start: 20160411
  10. PROLIA [Suspect]
     Active Substance: DENOSUMAB
     Indication: BONE DISORDER
  11. VITAMIN C [Concomitant]
     Active Substance: ASCORBIC ACID
     Dosage: 1000 MG, BID
     Route: 048
     Dates: start: 20131202
  12. VITAMIN D3 [Concomitant]
     Active Substance: CHOLECALCIFEROL
     Dosage: 5000 UNIT, BID
     Route: 048
     Dates: start: 20141002
  13. VITAMIN D [Concomitant]
     Active Substance: CHOLECALCIFEROL
     Dosage: UNK UNK, QD
  14. LIOTHYRONINE SODIUM. [Concomitant]
     Active Substance: LIOTHYRONINE SODIUM
     Dosage: 5 MUG, BID
     Route: 048
     Dates: start: 20140110
  15. LEVOTHYROXINE. [Concomitant]
     Active Substance: LEVOTHYROXINE

REACTIONS (13)
  - Memory impairment [Unknown]
  - Hot flush [Unknown]
  - Noonan syndrome [Recovered/Resolved]
  - Gastrooesophageal reflux disease [Unknown]
  - Night sweats [Unknown]
  - Sleep disorder [Unknown]
  - Urine analysis abnormal [Unknown]
  - Muscle spasms [Unknown]
  - Off label use [Unknown]
  - Vulvovaginal dryness [Unknown]
  - Upper respiratory tract infection [Recovered/Resolved]
  - Respiratory tract infection [Unknown]
  - Dysuria [Unknown]
